FAERS Safety Report 8605912 (Version 3)
Quarter: 2014Q3

REPORT INFORMATION
  Report Type: Spontaneous
  Country: US (occurrence: US)
  Receive Date: 20120608
  Receipt Date: 20140910
  Transmission Date: 20150326
  Serious: No
  Sender: FDA-Public Use
  Company Number: US-ASTRAZENECA-2010SE08583

PATIENT
  Age: 87 Year
  Sex: Female

DRUGS (8)
  1. ATENOLOL. [Suspect]
     Active Substance: ATENOLOL
     Route: 048
  2. NORVASC [Concomitant]
     Active Substance: AMLODIPINE BESYLATE
  3. BAYER ASPIRIN [Concomitant]
     Active Substance: ASPIRIN
  4. MORPHINE (NON AZ PRODUCT) [Suspect]
     Active Substance: MORPHINE
     Route: 065
  5. NEXIUM [Suspect]
     Active Substance: ESOMEPRAZOLE MAGNESIUM
     Route: 048
  6. MUVTAQ [Concomitant]
     Dosage: 1/2 DAILY 400 MG
  7. METOPROLOL [Suspect]
     Active Substance: METOPROLOL
     Route: 048
  8. CHLORDIAZEPOXIDE [Concomitant]
     Active Substance: CHLORDIAZEPOXIDE

REACTIONS (10)
  - Chest pain [Unknown]
  - Fatigue [Unknown]
  - Dizziness [Unknown]
  - Visual impairment [Unknown]
  - Influenza [Unknown]
  - Constipation [Unknown]
  - Regurgitation [Unknown]
  - Drug hypersensitivity [Unknown]
  - Dysphonia [Unknown]
  - Malaise [Unknown]
